FAERS Safety Report 4604723-0 (Version None)
Quarter: 2005Q2

REPORT INFORMATION
  Report Type: 
  Country: None (occurrence: None)
  Receive Date: 20050217
  Receipt Date: 20041028
  Transmission Date: 20051028
  Serious: No
  Sender: FDA-Public Use
  Company Number: S04-USA-07219-01

PATIENT
  Sex: Female

DRUGS (4)
  1. NAMENDA [Suspect]
     Dosage: 10 MG BID PO
     Route: 048
     Dates: start: 20040101, end: 20040101
  2. NAMENDA [Suspect]
     Dates: start: 20040101
  3. NAMENDA [Suspect]
     Dates: start: 20040828, end: 20040101
  4. ARICEPT [Concomitant]

REACTIONS (1)
  - CONFUSIONAL STATE [None]
